FAERS Safety Report 7633177-5 (Version None)
Quarter: 2011Q3

REPORT INFORMATION
  Report Type: 
  Country: None (occurrence: None)
  Receive Date: 20110725
  Receipt Date: 20110720
  Transmission Date: 20111222
  Serious: Yes (Hospitalization, Other)
  Sender: FDA-Public Use
  Company Number: FR-PFIZER INC-2011164130

PATIENT
  Age: 64 Year
  Sex: Female

DRUGS (13)
  1. LEVOTHYROXINE SODIUM [Concomitant]
     Dosage: UNK
  2. ABILIFY [Concomitant]
     Dosage: UNK
  3. ANAFRANIL [Concomitant]
     Dosage: UNK
  4. LASIX [Concomitant]
     Dosage: UNK
  5. LAMICTAL [Concomitant]
     Dosage: UNK
  6. MORPHINE SULFATE [Suspect]
     Indication: PROCEDURAL PAIN
     Dosage: UNK
     Route: 048
     Dates: start: 20110325, end: 20110328
  7. FOSINOPRIL SODIUM [Concomitant]
     Dosage: UNK
  8. PARACETAMOL [Concomitant]
     Dosage: UNK
  9. NOCTRAN 10 [Concomitant]
     Dosage: UNK
  10. LEXOMIL [Suspect]
     Indication: DEPRESSIVE SYMPTOM
     Dosage: UNK
     Route: 048
     Dates: start: 20110324, end: 20110328
  11. NEXIUM [Concomitant]
     Dosage: UNK
  12. XANAX [Suspect]
     Indication: DEPRESSIVE SYMPTOM
     Dosage: UNK
     Route: 048
     Dates: start: 20110324, end: 20110328
  13. ACUPAN [Suspect]
     Indication: PROCEDURAL PAIN
     Dosage: UNK
     Dates: start: 20110324, end: 20110328

REACTIONS (4)
  - ACCIDENTAL OVERDOSE [None]
  - ALTERED STATE OF CONSCIOUSNESS [None]
  - RENAL FAILURE ACUTE [None]
  - TOXICITY TO VARIOUS AGENTS [None]
